FAERS Safety Report 5358296-8 (Version None)
Quarter: 2007Q2

REPORT INFORMATION
  Report Type: 
  Country: None (occurrence: None)
  Receive Date: 20070530
  Receipt Date: 20061003
  Transmission Date: 20071010
  Serious: Yes (Other)
  Sender: FDA-Public Use
  Company Number: US200603001280

PATIENT
  Age: 51 Year
  Sex: Female
  Weight: 127 kg

DRUGS (2)
  1. ZYPREXA [Suspect]
     Dates: start: 20010101
  2. BUPROPION HCL [Concomitant]

REACTIONS (2)
  - DIABETES MELLITUS [None]
  - PANCREATITIS [None]
